FAERS Safety Report 16158530 (Version 2)
Quarter: 2019Q2

REPORT INFORMATION
  Report Type: Spontaneous
  Country: JP (occurrence: JP)
  Receive Date: 20190404
  Receipt Date: 20190527
  Transmission Date: 20190711
  Serious: Yes (Hospitalization)
  Sender: FDA-Public Use
  Company Number: JP-ROCHE-2296816

PATIENT
  Age: 68 Year
  Sex: Male

DRUGS (5)
  1. MAOTO [Concomitant]
     Active Substance: HERBALS
     Indication: INFLUENZA
     Route: 048
     Dates: start: 20190117, end: 20190120
  2. RESPLEN [Concomitant]
     Active Substance: EPRAZINONE
     Indication: INFLUENZA
     Route: 048
     Dates: start: 20190107
  3. TRANSAMIN [Concomitant]
     Active Substance: TRANEXAMIC ACID
     Indication: INFLUENZA
     Route: 048
     Dates: start: 20190117, end: 20190120
  4. ACETAMINOPHEN. [Concomitant]
     Active Substance: ACETAMINOPHEN
     Indication: INFLUENZA
     Route: 065
     Dates: start: 20190117
  5. XOFLUZA [Suspect]
     Active Substance: BALOXAVIR MARBOXIL
     Indication: INFLUENZA
     Route: 048
     Dates: start: 20190117, end: 20190117

REACTIONS (1)
  - Rhabdomyolysis [Recovered/Resolved]

NARRATIVE: CASE EVENT DATE: 20190118
